FAERS Safety Report 23153056 (Version 2)
Quarter: 2023Q4

REPORT INFORMATION
  Report Type: Report from Study
  Country: US (occurrence: None)
  Receive Date: 20231107
  Receipt Date: 20231220
  Transmission Date: 20240110
  Serious: Yes (Hospitalization, Other)
  Sender: FDA-Public Use
  Company Number: 2023A247222

PATIENT
  Age: 1022 Month
  Sex: Male

DRUGS (1)
  1. CALQUENCE [Suspect]
     Active Substance: ACALABRUTINIB
     Route: 048
     Dates: start: 20230825

REACTIONS (2)
  - Osteomyelitis [Unknown]
  - Femur fracture [Unknown]

NARRATIVE: CASE EVENT DATE: 20230801
